FAERS Safety Report 25967363 (Version 1)
Quarter: 2025Q4

REPORT INFORMATION
  Report Type: Spontaneous
  Country: EU (occurrence: EU)
  Receive Date: 20251028
  Receipt Date: 20251028
  Transmission Date: 20260117
  Serious: Yes (Hospitalization, Other)
  Sender: BAXTER
  Company Number: None

PATIENT
  Age: 42 Year
  Sex: Female

DRUGS (6)
  1. CYCLOPHOSPHAMIDE [Suspect]
     Active Substance: CYCLOPHOSPHAMIDE
     Indication: Lymphoma
     Dosage: 1320 MG, QD
     Route: 042
     Dates: start: 20250602, end: 20250610
  2. DOXORUBICIN [Suspect]
     Active Substance: DOXORUBICIN
     Indication: Lymphoma
     Dosage: 88 MG, QD
     Route: 042
     Dates: start: 20250602, end: 20250610
  3. BRENTUXIMAB VEDOTIN [Suspect]
     Active Substance: BRENTUXIMAB VEDOTIN
     Indication: Lymphoma
     Dosage: 122 MG, QD
     Route: 042
     Dates: start: 20250602, end: 20250610
  4. METHYLPREDNISOLONE [Concomitant]
     Active Substance: METHYLPREDNISOLONE
     Indication: Lymphoma
     Dosage: 80 MG, QD
     Route: 042
     Dates: start: 20250602, end: 20250610
  5. ONDANSETRON [Concomitant]
     Active Substance: ONDANSETRON
     Indication: Lymphoma
     Dosage: 8 MG, QD
     Route: 042
     Dates: start: 20250602, end: 20250610
  6. FILGRASTIM [Concomitant]
     Active Substance: FILGRASTIM
     Indication: Lymphoma
     Dosage: 300 MEGA INTERNATIONAL UNIT, QD
     Route: 042
     Dates: start: 20250602, end: 20250610

REACTIONS (1)
  - Guillain-Barre syndrome [Recovered/Resolved]

NARRATIVE: CASE EVENT DATE: 20250604
